FAERS Safety Report 7771600-6 (Version None)
Quarter: 2011Q3

REPORT INFORMATION
  Report Type: 
  Country: None (occurrence: None)
  Receive Date: 20110922
  Receipt Date: 20110110
  Transmission Date: 20111222
  Serious: No
  Sender: FDA-Public Use
  Company Number: US-ASTRAZENECA-2011SE01497

PATIENT
  Sex: Female

DRUGS (3)
  1. SEROQUEL [Suspect]
     Route: 048
  2. SEROQUEL [Suspect]
     Route: 048
  3. SEROQUEL [Suspect]
     Indication: INSOMNIA
     Route: 048

REACTIONS (4)
  - HEART RATE INCREASED [None]
  - INCREASED APPETITE [None]
  - BLOOD GLUCOSE INCREASED [None]
  - WRONG TECHNIQUE IN DRUG USAGE PROCESS [None]
